FAERS Safety Report 17953029 (Version 3)
Quarter: 2021Q1

REPORT INFORMATION
  Report Type: Spontaneous
  Country: US (occurrence: US)
  Receive Date: 20200627
  Receipt Date: 20210308
  Transmission Date: 20210419
  Serious: No
  Sender: FDA-Public Use
  Company Number: US-ASTRAZENECA-2020SE78918

PATIENT
  Sex: Male
  Weight: 81.6 kg

DRUGS (1)
  1. BYDUREON BCISE [Suspect]
     Active Substance: EXENATIDE
     Indication: DIABETES MELLITUS
     Route: 065

REACTIONS (3)
  - Incorrect dose administered by device [Not Recovered/Not Resolved]
  - Injection site mass [Not Recovered/Not Resolved]
  - Device malfunction [Not Recovered/Not Resolved]
